FAERS Safety Report 21525576 (Version 2)
Quarter: 2023Q1

REPORT INFORMATION
  Report Type: Report from Study
  Country: US (occurrence: US)
  Receive Date: 20221031
  Receipt Date: 20230124
  Transmission Date: 20230417
  Serious: Yes (Hospitalization, Other)
  Sender: FDA-Public Use
  Company Number: US-ABBVIE-4164749

PATIENT
  Sex: Female

DRUGS (4)
  1. VENCLEXTA [Suspect]
     Active Substance: VENETOCLAX
     Indication: Acute myeloid leukaemia
     Dosage: 50 MG DAILY FOR 14 DAYS ON, 21 DAYS OFF.
     Route: 048
     Dates: start: 20220418
  2. Covid-19 vaccine [Concomitant]
     Indication: COVID-19 immunisation
     Dosage: TIME INTERVAL: TOTAL: ONE IN ONCE, FIRST DOSE
     Route: 030
  3. Covid-19 vaccine [Concomitant]
     Indication: COVID-19 immunisation
     Dosage: TIME INTERVAL: TOTAL: ONE IN ONCE, SECOND DOSE
     Route: 030
  4. Covid-19 vaccine [Concomitant]
     Indication: COVID-19 immunisation
     Dosage: TIME INTERVAL: TOTAL: ONE IN ONCE, THIRD (BOOSTER) DOSE
     Route: 030
     Dates: start: 20221013, end: 20221013

REACTIONS (5)
  - Respiratory syncytial virus infection [Unknown]
  - Arthritis [Unknown]
  - Fatigue [Unknown]
  - Taste disorder [Unknown]
  - Chemotherapy [Unknown]

NARRATIVE: CASE EVENT DATE: 20220101
